FAERS Safety Report 4644330-7 (Version None)
Quarter: 2005Q2

REPORT INFORMATION
  Report Type: 
  Country: None (occurrence: None)
  Receive Date: 20050331
  Receipt Date: 20041229
  Transmission Date: 20051028
  Serious: No
  Sender: FDA-Public Use
  Company Number: 04P-163-0284981-00

PATIENT
  Age: 51 Year
  Sex: Male
  Weight: 81.6475 kg

DRUGS (11)
  1. HUMIRA [Suspect]
     Indication: RHEUMATOID ARTHRITIS
     Dosage: 40 MG, 1 IN 1 WK, SUBCUTANEOUS;  40 MG, 1 IN 2 WK, SUBCUTANEOUS;  40 MG, 1 IN 1 WK, SUBCUTANEOUS
     Route: 058
     Dates: start: 20030101, end: 20041001
  2. HUMIRA [Suspect]
     Indication: RHEUMATOID ARTHRITIS
     Dosage: 40 MG, 1 IN 1 WK, SUBCUTANEOUS;  40 MG, 1 IN 2 WK, SUBCUTANEOUS;  40 MG, 1 IN 1 WK, SUBCUTANEOUS
     Route: 058
     Dates: start: 20041001, end: 20041201
  3. HUMIRA [Suspect]
     Indication: RHEUMATOID ARTHRITIS
     Dosage: 40 MG, 1 IN 1 WK, SUBCUTANEOUS;  40 MG, 1 IN 2 WK, SUBCUTANEOUS;  40 MG, 1 IN 1 WK, SUBCUTANEOUS
     Route: 058
     Dates: start: 20041216
  4. ACETYL SALICYLIC ACID USP BAT [Concomitant]
  5. DIET SMART [Concomitant]
  6. CARBSMART [Concomitant]
  7. PANTOPRAZOLE [Concomitant]
  8. CALCIUM GLUCONATE [Concomitant]
  9. PREDNISONE TAB [Concomitant]
  10. FOLIC ACID [Concomitant]
  11. BENEFIBER [Concomitant]

REACTIONS (2)
  - BRONCHITIS [None]
  - NERVE COMPRESSION [None]
